FAERS Safety Report 7265491-X (Version None)
Quarter: 2011Q1

REPORT INFORMATION
  Report Type: 
  Country: None (occurrence: None)
  Receive Date: 20110131
  Receipt Date: 20110120
  Transmission Date: 20110831
  Serious: Yes (Hospitalization)
  Sender: FDA-Public Use
  Company Number: US-ROCHE-746332

PATIENT
  Age: 66 Year
  Sex: Female
  Weight: 91 kg

DRUGS (16)
  1. ENALAPRIL MALEATE [Concomitant]
     Dates: start: 20100518
  2. TRAMADOL HCL [Concomitant]
     Dates: start: 20090204
  3. NEORAL [Suspect]
     Route: 048
     Dates: start: 20100625, end: 20101123
  4. METOPROLOL [Concomitant]
     Dates: start: 20080703
  5. DOCUSATE [Concomitant]
     Dates: start: 20080527
  6. SPIRONOLACTONE [Concomitant]
     Dates: start: 20100216
  7. HYDROXYCHLOROQUINE SULFATE [Concomitant]
     Dates: start: 20080620
  8. MYCOPHENOLATE MOFETIL [Suspect]
     Route: 048
     Dates: start: 20080905
  9. FUROSEMIDE [Concomitant]
     Dates: start: 20080602
  10. HYDROCHLOROTHIAZIDE [Concomitant]
     Dates: start: 20100216
  11. OMEPRAZOLE [Concomitant]
     Dates: start: 20080526
  12. DIPHENHYDRAMINE [Concomitant]
     Dates: start: 20000101
  13. CALCIUM CARBONATE [Concomitant]
     Dates: start: 20080606
  14. NEORAL [Suspect]
     Dosage: THERAPY INCREASED
     Route: 048
     Dates: start: 20101124
  15. AMLODIPINE [Concomitant]
     Dates: start: 20081022
  16. PREDNISONE [Suspect]
     Route: 048
     Dates: start: 20090520

REACTIONS (2)
  - TRANSPLANT REJECTION [None]
  - HYPERKALAEMIA [None]
